FAERS Safety Report 5722572-7 (Version None)
Quarter: 2008Q2

REPORT INFORMATION
  Report Type: 
  Country: None (occurrence: None)
  Receive Date: 20080429
  Receipt Date: 20070731
  Transmission Date: 20081010
  Serious: No
  Sender: FDA-Public Use
  Company Number: US-ASTRAZENECA-2007UW18351

PATIENT
  Age: 85 Year
  Sex: Female
  Weight: 44 kg

DRUGS (2)
  1. NEXIUM [Suspect]
     Indication: GASTROOESOPHAGEAL REFLUX DISEASE
     Route: 048
  2. LISINOPRIL [Concomitant]
     Dosage: HALF IN MORNING AND HALF AT NIGHT

REACTIONS (2)
  - FEELING ABNORMAL [None]
  - NAUSEA [None]
